FAERS Safety Report 9415473 (Version 3)
Quarter: 2013Q3

REPORT INFORMATION
  Report Type: Spontaneous
  Country: US (occurrence: US)
  Receive Date: 20130723
  Receipt Date: 20130819
  Transmission Date: 20140515
  Serious: Yes (Hospitalization, Disabling)
  Sender: FDA-Public Use
  Company Number: US-GILEAD-2013-0079626

PATIENT
  Sex: Female

DRUGS (1)
  1. LETAIRIS [Suspect]
     Indication: PRODUCT USED FOR UNKNOWN INDICATION
     Dosage: 10 MG, QD
     Dates: start: 20130326

REACTIONS (6)
  - Cellulitis [Unknown]
  - Raynaud^s phenomenon [Unknown]
  - Finger amputation [Unknown]
  - Urticaria [Unknown]
  - Unevaluable event [Unknown]
  - Unevaluable event [Unknown]
